FAERS Safety Report 7754615-3 (Version None)
Quarter: 2011Q3

REPORT INFORMATION
  Report Type: 
  Country: None (occurrence: None)
  Receive Date: 20110915
  Receipt Date: 20110908
  Transmission Date: 20111222
  Serious: Yes (Hospitalization)
  Sender: FDA-Public Use
  Company Number: FR-MERCK-1108FRA00051

PATIENT
  Age: 76 Year
  Sex: Male
  Weight: 84 kg

DRUGS (12)
  1. FUROSEMIDE [Concomitant]
     Indication: RENAL FAILURE
     Route: 065
  2. IRBESARTAN [Concomitant]
     Indication: HYPERTENSION
     Route: 065
     Dates: start: 20060101
  3. GLICLAZIDE [Concomitant]
     Indication: TYPE 2 DIABETES MELLITUS
     Route: 048
     Dates: start: 20100720, end: 20101022
  4. GLICLAZIDE [Concomitant]
     Route: 048
     Dates: start: 20010101, end: 20100720
  5. METFORMIN HYDROCHLORIDE [Concomitant]
     Indication: TYPE 2 DIABETES MELLITUS
     Route: 048
     Dates: start: 20100720, end: 20110317
  6. ATENOLOL [Concomitant]
     Indication: ATRIAL FIBRILLATION
     Route: 065
     Dates: start: 20010101
  7. JANUMET [Suspect]
     Indication: TYPE 2 DIABETES MELLITUS
     Route: 048
     Dates: start: 20100401, end: 20110601
  8. GLICLAZIDE [Concomitant]
     Route: 048
     Dates: start: 20110317, end: 20110101
  9. FLUINDIONE [Concomitant]
     Indication: ATRIAL FIBRILLATION
     Route: 065
     Dates: start: 20010101
  10. GLICLAZIDE [Concomitant]
     Route: 048
     Dates: start: 20101022, end: 20110111
  11. GLICLAZIDE [Concomitant]
     Route: 048
     Dates: start: 20110111, end: 20110317
  12. ATORVASTATIN CALCIUM [Concomitant]
     Indication: DYSLIPIDAEMIA
     Route: 065
     Dates: start: 20010101

REACTIONS (4)
  - RENAL FAILURE [None]
  - VOMITING [None]
  - ASTHENIA [None]
  - VERTIGO [None]
